FAERS Safety Report 6683066-8 (Version None)
Quarter: 2010Q2

REPORT INFORMATION
  Report Type: 
  Country: None (occurrence: None)
  Receive Date: 20100415
  Receipt Date: 20100407
  Transmission Date: 20101027
  Serious: Yes (Hospitalization)
  Sender: FDA-Public Use
  Company Number: PHHY2010JP21879

PATIENT
  Age: 40 Year
  Sex: Male

DRUGS (5)
  1. TEGRETOL [Suspect]
     Indication: SCHIZOPHRENIA
     Dosage: 400 MG DAILY
     Route: 048
  2. RISPERIDONE [Concomitant]
     Indication: SCHIZOPHRENIA
     Dosage: 8 MG
     Route: 048
  3. SULPIRIDE [Concomitant]
     Indication: SCHIZOPHRENIA
     Dosage: 300 MG
     Route: 048
  4. LEVOMEPROMAZINE MALEATE [Concomitant]
     Indication: SCHIZOPHRENIA
     Dosage: 50 MG
     Route: 048
  5. CHLORPROMAZINE HCL [Concomitant]
     Indication: SCHIZOPHRENIA
     Dosage: 90 MG
     Route: 048

REACTIONS (3)
  - NEUROLEPTIC MALIGNANT SYNDROME [None]
  - RHABDOMYOLYSIS [None]
  - WATER INTOXICATION [None]
